FAERS Safety Report 8505098-7 (Version None)
Quarter: 2012Q3

REPORT INFORMATION
  Report Type: 
  Country: None (occurrence: None)
  Receive Date: 20120712
  Receipt Date: 20120710
  Transmission Date: 20120928
  Serious: Yes (Death)
  Sender: FDA-Public Use
  Company Number: PHEH2012US009068

PATIENT
  Age: 65 Year
  Sex: Female
  Weight: 61.224 kg

DRUGS (1)
  1. TOBI [Suspect]
     Indication: CYSTIC FIBROSIS
     Dosage: 300 MG, BID ALTERNATING MONTHS
     Dates: start: 20120305

REACTIONS (1)
  - DEATH [None]
